FAERS Safety Report 6760898-9 (Version None)
Quarter: 2010Q2

REPORT INFORMATION
  Report Type: 
  Country: None (occurrence: None)
  Receive Date: 20100608
  Receipt Date: 20100531
  Transmission Date: 20101027
  Serious: Yes (Hospitalization)
  Sender: FDA-Public Use
  Company Number: PL-ROCHE-575222

PATIENT
  Sex: Female
  Weight: 62 kg

DRUGS (5)
  1. BEVACIZUMAB [Suspect]
     Dosage: LAST DOES PRIOR TO SAE RECEIVED ON 04 JUNE 2008.DOSE FORM REPORTED AS AMPULE.
     Route: 042
     Dates: start: 20071221, end: 20080620
  2. PACLITAXEL [Suspect]
     Dosage: DRUG NAME REPORTED AS PACLITAKSEL.
     Route: 042
     Dates: end: 20080620
  3. BISOPROLOL [Concomitant]
  4. PAMIDRONIAN [Concomitant]
     Dates: start: 20071213, end: 20080710
  5. TIMONACIC [Concomitant]
     Dates: start: 20080418, end: 20080709

REACTIONS (2)
  - HYPERBILIRUBINAEMIA [None]
  - HYPERTRANSAMINASAEMIA [None]
